FAERS Safety Report 4362542-7 (Version None)
Quarter: 2004Q2

REPORT INFORMATION
  Report Type: 
  Country: None (occurrence: None)
  Receive Date: 20040517
  Receipt Date: 20040316
  Transmission Date: 20050107
  Serious: Yes (Hospitalization)
  Sender: FDA-Public Use
  Company Number: S04-USA-01553-01

PATIENT
  Age: 73 Year
  Sex: Male

DRUGS (3)
  1. NAMENDA [Suspect]
     Indication: DEMENTIA
     Dosage: 20 MG QD PO
     Route: 048
     Dates: start: 20031101
  2. EXELON [Concomitant]
  3. CARDIAC MEDICATIONS (NOS) [Concomitant]

REACTIONS (1)
  - DIZZINESS [None]
